FAERS Safety Report 11811238 (Version 2)
Quarter: 2015Q4

REPORT INFORMATION
  Report Type: Spontaneous
  Country: US (occurrence: US)
  Receive Date: 20151208
  Receipt Date: 20151222
  Transmission Date: 20160305
  Serious: Yes (Hospitalization)
  Sender: FDA-Public Use
  Company Number: US-DEP_13141_2015

PATIENT
  Age: 79 Year
  Sex: Female
  Weight: 68 kg

DRUGS (5)
  1. DURAGESIC [Suspect]
     Active Substance: FENTANYL
     Indication: BACK PAIN
     Dosage: EVERY OTHER DAY
     Route: 062
  2. FENTANYL. [Suspect]
     Active Substance: FENTANYL
     Indication: BACK PAIN
     Dosage: EVERY OTHER DAY
     Route: 062
  3. NUCYNTA [Suspect]
     Active Substance: TAPENTADOL HYDROCHLORIDE
     Indication: PAIN
     Route: 048
     Dates: start: 2014
  4. SLELAXIN [Concomitant]
     Indication: MUSCLE RELAXANT THERAPY
     Dosage: AS NEEDED
     Route: 048
  5. DURAGESIC [Suspect]
     Active Substance: FENTANYL
     Route: 062
     Dates: start: 2014

REACTIONS (9)
  - Product quality issue [Not Recovered/Not Resolved]
  - Head injury [Recovered/Resolved]
  - Limb injury [Recovered/Resolved]
  - Balance disorder [Recovered/Resolved]
  - Back pain [Not Recovered/Not Resolved]
  - Gait disturbance [Not Recovered/Not Resolved]
  - Fall [Recovered/Resolved]
  - Neuropathy peripheral [Not Recovered/Not Resolved]
  - Drug ineffective [Not Recovered/Not Resolved]

NARRATIVE: CASE EVENT DATE: 201511
